FAERS Safety Report 10334613 (Version 3)
Quarter: 2014Q4

REPORT INFORMATION
  Report Type: Spontaneous
  Country: BR (occurrence: BR)
  Receive Date: 20140723
  Receipt Date: 20141007
  Transmission Date: 20150528
  Serious: Yes (Other)
  Sender: FDA-Public Use
  Company Number: BR-SA-2014SA095028

PATIENT
  Age: 64 Year
  Sex: Female
  Weight: 84 kg

DRUGS (9)
  1. AUTOPEN 24 [Concomitant]
     Active Substance: DEVICE
     Indication: DEVICE THERAPY
  2. ENALAPRIL MALEATE. [Concomitant]
     Active Substance: ENALAPRIL MALEATE
     Indication: BLOOD PRESSURE
     Route: 048
  3. ATENOLOL. [Concomitant]
     Active Substance: ATENOLOL
     Indication: BLOOD PRESSURE
     Route: 048
  4. APIDRA [Concomitant]
     Active Substance: INSULIN GLULISINE
     Dosage: ONLY WHEN HER GLYCAEMIA REACHES 200 MG/ DL IN THE AFTERNOON OR AT NIGHT
     Dates: start: 2011
  5. NATRILIX [Concomitant]
     Active Substance: INDAPAMIDE
     Indication: BLOOD PRESSURE
     Route: 048
  6. CENTRUM [Concomitant]
     Active Substance: VITAMINS
     Indication: SURGERY
     Route: 048
  7. DIOVAN [Concomitant]
     Active Substance: VALSARTAN
     Indication: BLOOD PRESSURE
     Route: 048
  8. LANTUS [Suspect]
     Active Substance: INSULIN GLARGINE
     Indication: TYPE 2 DIABETES MELLITUS
     Route: 058
     Dates: start: 2011
  9. METFORMIN [Concomitant]
     Active Substance: METFORMIN HYDROCHLORIDE
     Indication: TYPE 2 DIABETES MELLITUS
     Dosage: AT NIGHT
     Route: 048

REACTIONS (2)
  - Blood glucose increased [Recovering/Resolving]
  - Hernia repair [Unknown]

NARRATIVE: CASE EVENT DATE: 20140630
